FAERS Safety Report 24104494 (Version 1)
Quarter: 2024Q3

REPORT INFORMATION
  Report Type: Spontaneous
  Country: IN (occurrence: IN)
  Receive Date: 20240717
  Receipt Date: 20240717
  Transmission Date: 20241016
  Serious: Yes (Hospitalization)
  Sender: MYLAN
  Company Number: IN-MYLANLABS-2024M1065728

PATIENT
  Age: 57 Year
  Sex: Female

DRUGS (1)
  1. PREGABALIN [Suspect]
     Active Substance: PREGABALIN
     Indication: Back pain
     Dosage: UNK; FOR 1 YEAR, TABLET
     Route: 065

REACTIONS (1)
  - Drug ineffective [Unknown]
